FAERS Safety Report 24764565 (Version 1)
Quarter: 2024Q4

REPORT INFORMATION
  Report Type: Spontaneous
  Country: PL (occurrence: PL)
  Receive Date: 20241223
  Receipt Date: 20241223
  Transmission Date: 20250114
  Serious: Yes (Other)
  Sender: SANDOZ
  Company Number: PL-PFM-2021-02824

PATIENT
  Age: 2 Year
  Sex: Male

DRUGS (20)
  1. CISPLATIN [Suspect]
     Active Substance: CISPLATIN
     Indication: Bone marrow conditioning regimen
     Dosage: UNK
     Route: 065
  2. CISPLATIN [Suspect]
     Active Substance: CISPLATIN
     Indication: Myeloid leukaemia
     Dosage: UNK
     Route: 065
  3. CISPLATIN [Suspect]
     Active Substance: CISPLATIN
     Indication: Stem cell transplant
     Dosage: UNK
     Route: 065
  4. CYCLOPHOSPHAMIDE [Suspect]
     Active Substance: CYCLOPHOSPHAMIDE
     Indication: Bone marrow conditioning regimen
     Dosage: UNK
     Route: 065
  5. CYCLOPHOSPHAMIDE [Suspect]
     Active Substance: CYCLOPHOSPHAMIDE
     Indication: Myeloid leukaemia
     Dosage: UNK
     Route: 065
  6. CYCLOPHOSPHAMIDE [Suspect]
     Active Substance: CYCLOPHOSPHAMIDE
     Indication: Stem cell transplant
     Dosage: UNK
     Route: 065
  7. ETOPOSIDE [Suspect]
     Active Substance: ETOPOSIDE
     Indication: Bone marrow conditioning regimen
     Dosage: UNK
     Route: 065
  8. ETOPOSIDE [Suspect]
     Active Substance: ETOPOSIDE
     Indication: Myeloid leukaemia
     Dosage: UNK
     Route: 065
  9. ETOPOSIDE [Suspect]
     Active Substance: ETOPOSIDE
     Indication: Stem cell transplant
     Dosage: UNK
     Route: 065
  10. MELPHALAN [Suspect]
     Active Substance: MELPHALAN
     Indication: Bone marrow conditioning regimen
     Dosage: 140 MG/M2
     Route: 065
  11. MELPHALAN [Suspect]
     Active Substance: MELPHALAN
     Indication: Myeloid leukaemia
     Dosage: UNK
     Route: 065
  12. MELPHALAN [Suspect]
     Active Substance: MELPHALAN
     Indication: Stem cell transplant
     Dosage: UNK
     Route: 065
  13. MELPHALAN [Suspect]
     Active Substance: MELPHALAN
     Indication: Myeloid leukaemia
  14. MELPHALAN [Suspect]
     Active Substance: MELPHALAN
     Indication: Stem cell transplant
  15. MYLERAN [Suspect]
     Active Substance: BUSULFAN
     Indication: Stem cell transplant
     Dosage: 16 X 1.2MG/KG
     Route: 065
  16. MYLERAN [Suspect]
     Active Substance: BUSULFAN
     Indication: Bone marrow conditioning regimen
     Dosage: UNK
     Route: 065
  17. MYLERAN [Suspect]
     Active Substance: BUSULFAN
     Indication: Myeloid leukaemia
     Dosage: UNK
     Route: 065
  18. VINCRISTINE [Suspect]
     Active Substance: VINCRISTINE
     Indication: Bone marrow conditioning regimen
     Dosage: UNK
     Route: 065
  19. VINCRISTINE [Suspect]
     Active Substance: VINCRISTINE
     Indication: Myeloid leukaemia
     Dosage: UNK
     Route: 065
  20. VINCRISTINE [Suspect]
     Active Substance: VINCRISTINE
     Indication: Stem cell transplant
     Dosage: UNK
     Route: 065

REACTIONS (5)
  - Toxocariasis [Recovered/Resolved]
  - Parasitic pneumonia [Recovered/Resolved]
  - Pyelonephritis [Unknown]
  - Venoocclusive liver disease [Unknown]
  - Mucosal inflammation [Unknown]
